FAERS Safety Report 9106621 (Version 2)
Quarter: 2013Q1

REPORT INFORMATION
  Report Type: Spontaneous
  Country: AU (occurrence: AU)
  Receive Date: 20130222
  Receipt Date: 20130326
  Transmission Date: 20140127
  Serious: Yes (Hospitalization)
  Sender: FDA-Public Use
  Company Number: AU-B.I. PHARMACEUTICALS,INC./RIDGEFIELD-2013-AU-00147AU

PATIENT
  Sex: Female

DRUGS (1)
  1. PRADAXA [Suspect]
     Indication: ATRIAL FIBRILLATION
     Dosage: 220 MG

REACTIONS (4)
  - Cardiac failure congestive [Unknown]
  - Infective exacerbation of chronic obstructive airways disease [Recovered/Resolved]
  - Renal impairment [Recovered/Resolved]
  - Fluid overload [Recovered/Resolved]
